FAERS Safety Report 24880354 (Version 1)
Quarter: 2025Q1

REPORT INFORMATION
  Report Type: Other
  Country: BR (occurrence: BR)
  Receive Date: 20250123
  Receipt Date: 20250123
  Transmission Date: 20250409
  Serious: Yes (Congenital Anomaly, Other)
  Sender: BRECKENRIDGE PHARMACEUTICAL, INC.
  Company Number: BR-Breckenridge Pharmaceutical, Inc.-2169669

PATIENT
  Age: 45 Year
  Sex: Female

DRUGS (3)
  1. ZOLPIDEM [Suspect]
     Active Substance: ZOLPIDEM TARTRATE
     Indication: Insomnia
  2. CLONAZEPAM [Concomitant]
     Active Substance: CLONAZEPAM
  3. ESCITALOPRAM [Concomitant]
     Active Substance: ESCITALOPRAM OXALATE

REACTIONS (10)
  - Toxicity to various agents [Unknown]
  - Substance use disorder [Unknown]
  - Stillbirth [Unknown]
  - Dependence [Unknown]
  - Social problem [Unknown]
  - Disturbance in attention [Unknown]
  - Somnolence [Unknown]
  - Drug dependence [Unknown]
  - Insomnia [Unknown]
  - Fall [Unknown]
